FAERS Safety Report 22265772 (Version 1)
Quarter: 2023Q2

REPORT INFORMATION
  Report Type: Spontaneous
  Country: IT (occurrence: IT)
  Receive Date: 20230428
  Receipt Date: 20230428
  Transmission Date: 20230722
  Serious: Yes (Other)
  Sender: FDA-Public Use
  Company Number: IT-009507513-2304ITA010589

PATIENT
  Age: 65 Year
  Sex: Female

DRUGS (4)
  1. PEMBROLIZUMAB [Suspect]
     Active Substance: PEMBROLIZUMAB
     Indication: Clear cell renal cell carcinoma
     Dosage: 200 MG CYCLICALLY
     Route: 042
     Dates: start: 202101, end: 202105
  2. PEMBROLIZUMAB [Suspect]
     Active Substance: PEMBROLIZUMAB
     Dosage: 200 MG CYCLICALLY
     Dates: start: 202106
  3. AXITINIB [Suspect]
     Active Substance: AXITINIB
     Indication: Clear cell renal cell carcinoma
     Dosage: 5 MG CYCLICALLY
     Route: 048
     Dates: start: 202101, end: 202105
  4. AXITINIB [Suspect]
     Active Substance: AXITINIB
     Dosage: 3 MG, REPORTED AS ^DAILY BID^
     Route: 048
     Dates: start: 202106

REACTIONS (1)
  - Immune-mediated hepatic disorder [Recovered/Resolved]

NARRATIVE: CASE EVENT DATE: 20210501
